APPROVED DRUG PRODUCT: NIFEDIPINE
Active Ingredient: NIFEDIPINE
Strength: 90MG
Dosage Form/Route: TABLET, EXTENDED RELEASE;ORAL
Application: A075414 | Product #003
Applicant: MARTEC USA LLC
Approved: Mar 23, 2004 | RLD: No | RS: No | Type: DISCN